FAERS Safety Report 5834721-0 (Version None)
Quarter: 2008Q3

REPORT INFORMATION
  Report Type: 
  Country: None (occurrence: None)
  Receive Date: 20080801
  Receipt Date: 20080716
  Transmission Date: 20090109
  Serious: Yes (Hospitalization, Other)
  Sender: FDA-Public Use
  Company Number: 2008BI018071

PATIENT
  Age: 44 Year
  Sex: Male

DRUGS (2)
  1. TYSABRI [Suspect]
     Indication: MULTIPLE SCLEROSIS
     Dosage: IV;300 MG;QM;IV
     Route: 042
     Dates: start: 20060919
  2. KEPPRA [Concomitant]

REACTIONS (2)
  - CONVULSION [None]
  - PNEUMONIA [None]
